FAERS Safety Report 6612187-0 (Version None)
Quarter: 2010Q1

REPORT INFORMATION
  Report Type: 
  Country: None (occurrence: None)
  Receive Date: 20100302
  Receipt Date: 20100302
  Transmission Date: 20100710
  Serious: Yes (Life-Threatening, Hospitalization)
  Sender: FDA-Public Use
  Company Number: None

PATIENT
  Age: 9 Year
  Sex: Female
  Weight: 29.9374 kg

DRUGS (1)
  1. PROCHLORPERAZINE [Suspect]
     Indication: GASTROENTERITIS VIRAL
     Dosage: 1 TABLET BY MOUTH EVERY 8 HRS. PO
     Route: 048
     Dates: start: 20100227, end: 20100228

REACTIONS (7)
  - CORNEAL REFLEX DECREASED [None]
  - EYE ROLLING [None]
  - MUSCULOSKELETAL STIFFNESS [None]
  - PARALYSIS [None]
  - STARING [None]
  - TREMOR [None]
  - VISUAL IMPAIRMENT [None]
